FAERS Safety Report 14938924 (Version 5)
Quarter: 2018Q4

REPORT INFORMATION
  Report Type: Spontaneous
  Country: HU (occurrence: HU)
  Receive Date: 20180525
  Receipt Date: 20181030
  Transmission Date: 20190204
  Serious: Yes (Hospitalization, Other)
  Sender: FDA-Public Use
  Company Number: HU-MYLANLABS-2018M1033581

PATIENT
  Age: 5 Month
  Sex: Female

DRUGS (5)
  1. CEFTAZIDIME. [Suspect]
     Active Substance: CEFTAZIDIME
     Indication: BACTERIAL SEPSIS
     Dosage: UNK
     Route: 065
  2. TOBRAMYCIN. [Concomitant]
     Active Substance: TOBRAMYCIN
     Indication: BACTERIAL SEPSIS
     Dosage: UNK
     Route: 065
  3. AMIKACIN. [Suspect]
     Active Substance: AMIKACIN
     Indication: BACTERIAL SEPSIS
     Dosage: UNK
     Route: 065
  4. MEROPENEM. [Suspect]
     Active Substance: MEROPENEM
     Indication: BACTERIAL SEPSIS
     Dosage: UNK
     Route: 065
  5. AMPICILLIN [Suspect]
     Active Substance: AMPICILLIN
     Indication: BACTERIAL SEPSIS
     Dosage: UNK
     Route: 065

REACTIONS (11)
  - Pseudomonas infection [Recovered/Resolved]
  - Condition aggravated [Unknown]
  - Oedema [Recovered/Resolved]
  - Prothrombin level decreased [Recovered/Resolved]
  - Perineal necrosis [Unknown]
  - Erythema nodosum [Unknown]
  - General physical health deterioration [Recovered/Resolved]
  - Rash erythematous [Recovered/Resolved]
  - Anaemia [Recovered/Resolved]
  - Skin lesion [Recovered/Resolved]
  - Drug ineffective [Recovered/Resolved]
